FAERS Safety Report 17827447 (Version 1)
Quarter: 2020Q2

REPORT INFORMATION
  Report Type: Spontaneous
  Country: US (occurrence: US)
  Receive Date: 20200527
  Receipt Date: 20200527
  Transmission Date: 20200714
  Serious: No
  Sender: FDA-Public Use
  Company Number: US-JNJFOC-20200503551

PATIENT

DRUGS (1)
  1. PSEUDOEPHEDRINE HYDROCHLORIDE. [Suspect]
     Active Substance: PSEUDOEPHEDRINE HYDROCHLORIDE
     Indication: EAR DISORDER
     Route: 065
     Dates: start: 20200430

REACTIONS (5)
  - Headache [Unknown]
  - Therapeutic response unexpected [Unknown]
  - Ear disorder [Unknown]
  - Product use in unapproved indication [Unknown]
  - Off label use [Unknown]
